FAERS Safety Report 4796972-6 (Version None)
Quarter: 2005Q4

REPORT INFORMATION
  Report Type: 
  Country: None (occurrence: None)
  Receive Date: 20051011
  Receipt Date: 20051011
  Transmission Date: 20060501
  Serious: No
  Sender: FDA-Public Use
  Company Number: None

PATIENT
  Age: 73 Year
  Sex: Female

DRUGS (1)
  1. PHENERGAN [Suspect]
     Indication: NAUSEA
     Dosage: 25MG IV
     Route: 042
     Dates: start: 20050817, end: 20050817

REACTIONS (2)
  - ABNORMAL BEHAVIOUR [None]
  - MUSCLE TWITCHING [None]
